FAERS Safety Report 8520314-3 (Version None)
Quarter: 2012Q3

REPORT INFORMATION
  Report Type: 
  Country: None (occurrence: None)
  Receive Date: 20120713
  Receipt Date: 20120713
  Transmission Date: 20120928
  Serious: Yes (Death)
  Sender: FDA-Public Use
  Company Number: None

PATIENT
  Age: 53 Year
  Sex: Male
  Weight: 56.6996 kg

DRUGS (2)
  1. NITROUS OXIDE (USED AS PART OF ANESTHESIA) POSSIBLE [Suspect]
     Indication: GENERAL PHYSICAL HEALTH DETERIORATION
     Dates: start: 20100101
  2. NITROUS OXIDE (USED AS PART OF ANESTHESIA) POSSIBLE [Suspect]
     Indication: PHARYNGEAL HAEMORRHAGE
     Dates: start: 20100101

REACTIONS (3)
  - LIVER DISORDER [None]
  - ECONOMIC PROBLEM [None]
  - ASPIRATION [None]
